FAERS Safety Report 21289433 (Version 1)
Quarter: 2022Q3

REPORT INFORMATION
  Report Type: Spontaneous
  Country: US (occurrence: US)
  Receive Date: 20220902
  Receipt Date: 20220902
  Transmission Date: 20221026
  Serious: No
  Sender: FDA-Public Use
  Company Number: US-GSK-US2022AMR126596

PATIENT
  Sex: Female

DRUGS (1)
  1. BENLYSTA [Suspect]
     Active Substance: BELIMUMAB
     Indication: Systemic lupus erythematosus
     Dosage: UNK
     Route: 042
     Dates: start: 202208

REACTIONS (5)
  - Insomnia [Unknown]
  - Agitation [Unknown]
  - Mood swings [Unknown]
  - Hyperhidrosis [Unknown]
  - Migraine [Unknown]

NARRATIVE: CASE EVENT DATE: 20220101
